FAERS Safety Report 15283392 (Version 1)
Quarter: 2018Q3

REPORT INFORMATION
  Report Type: Spontaneous
  Country: GB (occurrence: GB)
  Receive Date: 20180816
  Receipt Date: 20180816
  Transmission Date: 20181010
  Serious: Yes (Hospitalization)
  Sender: FDA-Public Use
  Company Number: GB-TEVA-2018-GB-940586

PATIENT
  Age: 32 Year
  Sex: Female
  Weight: 62 kg

DRUGS (3)
  1. GABAPENTIN. [Concomitant]
     Active Substance: GABAPENTIN
  2. FLUOXETINE [Concomitant]
     Active Substance: FLUOXETINE HYDROCHLORIDE
  3. TOPIRAMATE. [Suspect]
     Active Substance: TOPIRAMATE
     Indication: HEADACHE
     Dosage: 100 MILLIGRAM DAILY;
     Route: 048
     Dates: start: 20180601, end: 20180705

REACTIONS (2)
  - Dyspnoea [Unknown]
  - Neutropenia [Recovering/Resolving]

NARRATIVE: CASE EVENT DATE: 20180704
